FAERS Safety Report 8840140 (Version 3)
Quarter: 2012Q4

REPORT INFORMATION
  Report Type: 
  Country: US (occurrence: US)
  Receive Date: 20121015
  Receipt Date: 20121206
  Transmission Date: 20130627
  Serious: Yes (Other)
  Sender: FDA-Public Use
  Company Number: US-PFIZER INC-2012253370

PATIENT
  Age: 52 Year
  Sex: Female
  Weight: 63.5 kg

DRUGS (9)
  1. ZOLOFT [Suspect]
     Indication: SLEEP DISORDER
     Dosage: 50 mg, Daily
     Dates: start: 1989, end: 2010
  2. ZOLOFT [Suspect]
     Dosage: 25 mg, daily
     Dates: start: 2010
  3. ZOLOFT [Suspect]
     Dosage: 25 mg, 2x/day
  4. ZOLOFT [Suspect]
     Dosage: 50 mg, daily
  5. ZOLOFT [Suspect]
     Dosage: 50 mg, UNK
  6. SERTRALINE HCL [Suspect]
     Indication: SLEEP DISORDER
     Dosage: 50 mg, daily
     Dates: start: 2010
  7. XANAX [Suspect]
     Indication: SLEEP DISORDER
     Dosage: UNK
  8. BUSPAR [Suspect]
     Indication: SLEEP DISORDER
     Dosage: UNK
  9. PROZAC [Suspect]
     Indication: SLEEP DISORDER
     Dosage: UNK

REACTIONS (5)
  - Intentional drug misuse [Unknown]
  - Depression [Recovered/Resolved]
  - Lower limb fracture [Unknown]
  - Anxiety [Recovered/Resolved]
  - Drug ineffective [Unknown]
